FAERS Safety Report 7729449-6 (Version None)
Quarter: 2011Q3

REPORT INFORMATION
  Report Type: 
  Country: None (occurrence: None)
  Receive Date: 20110901
  Receipt Date: 20110104
  Transmission Date: 20111222
  Serious: No
  Sender: FDA-Public Use
  Company Number: M2011-001A

PATIENT
  Age: 52 Year
  Sex: Male

DRUGS (1)
  1. ALLERGEN MIX [Suspect]
     Indication: HYPERSENSITIVITY
     Dosage: 0.2 ML INJECTION
     Dates: start: 20100101

REACTIONS (3)
  - DYSPNOEA [None]
  - URTICARIA [None]
  - PRURITUS GENERALISED [None]
